FAERS Safety Report 8839334 (Version 1)
Quarter: 2012Q4

REPORT INFORMATION
  Report Type: Spontaneous
  Country: US (occurrence: None)
  Receive Date: 20121012
  Receipt Date: 20121012
  Transmission Date: 20130627
  Serious: Yes (Death)
  Sender: FDA-Public Use
  Company Number: None

PATIENT
  Age: 72 Year
  Sex: Female
  Weight: 92.7 kg

DRUGS (2)
  1. ACTIVASE [Suspect]
     Indication: STROKE
     Route: 040
     Dates: start: 20111219, end: 20111219
  2. ACTIVASE [Suspect]
     Indication: STROKE
     Route: 041

REACTIONS (5)
  - Dyspnoea [None]
  - Anaphylactic shock [None]
  - Brain injury [None]
  - Infusion related reaction [None]
  - Cardio-respiratory arrest [None]
